FAERS Safety Report 7331899-7 (Version None)
Quarter: 2011Q1

REPORT INFORMATION
  Report Type: 
  Country: None (occurrence: None)
  Receive Date: 20110304
  Receipt Date: 20091022
  Transmission Date: 20110831
  Serious: No
  Sender: FDA-Public Use
  Company Number: US-PFIZER INC-2009271964

PATIENT
  Sex: Male
  Weight: 90.7 kg

DRUGS (2)
  1. ACETYLSALICYLIC ACID [Concomitant]
  2. CAVERJECT [Suspect]
     Indication: ERECTILE DYSFUNCTION
     Dosage: 40 MG, UNK
     Dates: start: 20040101

REACTIONS (2)
  - BLOOD CHOLESTEROL INCREASED [None]
  - DRUG INEFFECTIVE [None]
